FAERS Safety Report 5985934-9 (Version None)
Quarter: 2008Q4

REPORT INFORMATION
  Report Type: 
  Country: None (occurrence: None)
  Receive Date: 20081205
  Receipt Date: 20081205
  Transmission Date: 20090506
  Serious: Yes (Life-Threatening, Hospitalization)
  Sender: FDA-Public Use
  Company Number: None

PATIENT
  Age: 49 Year
  Sex: Female

DRUGS (1)
  1. ADENOSINE [Suspect]
     Indication: CARDIAC STRESS TEST
     Dates: start: 20081110, end: 20081110

REACTIONS (4)
  - CONVULSION [None]
  - DYSKINESIA [None]
  - INFUSION RELATED REACTION [None]
  - MUSCLE SPASMS [None]
